FAERS Safety Report 7610921-4 (Version None)
Quarter: 2011Q3

REPORT INFORMATION
  Report Type: 
  Country: None (occurrence: None)
  Receive Date: 20110707
  Receipt Date: 20110621
  Transmission Date: 20111222
  Serious: Yes (Hospitalization)
  Sender: FDA-Public Use
  Company Number: LTI2011A00174

PATIENT
  Age: 83 Year
  Sex: Female

DRUGS (3)
  1. XELEVIA (SITAGLIPTINE) DRUG USED IN DIABETES) [Concomitant]
  2. MICARDIS [Concomitant]
  3. ACTOS [Suspect]
     Indication: TYPE 2 DIABETES MELLITUS
     Dosage: 30 MG (30 MG, 1 IN 1 D) ORAL
     Route: 048
     Dates: start: 20071201, end: 20110401

REACTIONS (1)
  - BLADDER TRANSITIONAL CELL CARCINOMA [None]
